FAERS Safety Report 23615707 (Version 1)
Quarter: 2024Q1

REPORT INFORMATION
  Report Type: Report from Study
  Country: US (occurrence: US)
  Receive Date: 20240311
  Receipt Date: 20240311
  Transmission Date: 20240410
  Serious: Yes (Other)
  Sender: FDA-Public Use
  Company Number: US-ABBVIE-5671600

PATIENT
  Age: 55 Year
  Sex: Female

DRUGS (2)
  1. HUMIRA [Suspect]
     Active Substance: ADALIMUMAB
     Indication: Product used for unknown indication
     Route: 058
     Dates: start: 2016, end: 2017
  2. SKYRIZI [Suspect]
     Active Substance: RISANKIZUMAB-RZAA
     Indication: Psoriasis
     Route: 058

REACTIONS (8)
  - Sinus operation [Unknown]
  - Nasopharyngitis [Unknown]
  - Fatigue [Unknown]
  - Myalgia [Unknown]
  - Drug ineffective [Unknown]
  - Arthralgia [Unknown]
  - Headache [Unknown]
  - Chronic sinusitis [Unknown]

NARRATIVE: CASE EVENT DATE: 20160101
